FAERS Safety Report 5284340-2 (Version None)
Quarter: 2007Q2

REPORT INFORMATION
  Report Type: 
  Country: None (occurrence: None)
  Receive Date: 20070403
  Receipt Date: 20070321
  Transmission Date: 20071010
  Serious: Yes (Other)
  Sender: FDA-Public Use
  Company Number: CA-ELI_LILLY_AND_COMPANY-CA200703001963

PATIENT
  Age: 87 Year
  Sex: Female

DRUGS (5)
  1. CALCIUM WITH VITAMIN D [Concomitant]
     Dosage: 500 MG, 2/D
     Dates: start: 20000101
  2. VITAMIN D [Concomitant]
     Dosage: 1000 IU, DAILY (1/D)
     Dates: start: 20000101
  3. ALENDRONATE SODIUM [Concomitant]
     Dosage: 70 MG, WEEKLY (1/W)
     Dates: start: 20050607, end: 20060705
  4. ACTONEL [Concomitant]
     Dosage: 35 MG, DAILY (1/D)
     Dates: start: 20060706
  5. TERIPARATIDE [Suspect]
     Indication: OSTEOPOROSIS
     Dosage: 20 UG, DAILY (1/D)
     Route: 058
     Dates: start: 20031203, end: 20050607

REACTIONS (2)
  - BONE NEOPLASM MALIGNANT [None]
  - HIGH TURNOVER OSTEOPATHY [None]
